FAERS Safety Report 5079584-9 (Version None)
Quarter: 2006Q3

REPORT INFORMATION
  Report Type: 
  Country: None (occurrence: None)
  Receive Date: 20060808
  Receipt Date: 20060725
  Transmission Date: 20061208
  Serious: Yes (Other)
  Sender: FDA-Public Use
  Company Number: US200607004329

PATIENT
  Age: 80 Year
  Sex: Male

DRUGS (1)
  1. CIALIS [Suspect]
     Dates: start: 20060601

REACTIONS (1)
  - BLINDNESS UNILATERAL [None]
